FAERS Safety Report 14856222 (Version 1)
Quarter: 2018Q2

REPORT INFORMATION
  Report Type: Spontaneous
  Country: US (occurrence: US)
  Receive Date: 20180507
  Receipt Date: 20180507
  Transmission Date: 20180711
  Serious: No
  Sender: FDA-Public Use
  Company Number: US-ROCHE-2023845

PATIENT
  Sex: Female
  Weight: 44.95 kg

DRUGS (1)
  1. ESBRIET [Suspect]
     Active Substance: PIRFENIDONE
     Indication: INTERSTITIAL LUNG DISEASE
     Dosage: 3 CAPSULES, 3 TIMES DAILY;ONGOING: YES
     Route: 048
     Dates: start: 201708

REACTIONS (2)
  - Dyspnoea [Unknown]
  - Somnolence [Unknown]
